FAERS Safety Report 21489682 (Version 1)
Quarter: 2022Q4

REPORT INFORMATION
  Report Type: Spontaneous
  Country: US (occurrence: US)
  Receive Date: 20221021
  Receipt Date: 20221021
  Transmission Date: 20230113
  Serious: No
  Sender: FDA-Public Use
  Company Number: US-CELLTRION INC.-2022US014103

PATIENT

DRUGS (35)
  1. INFLECTRA [Suspect]
     Active Substance: INFLIXIMAB-DYYB
     Indication: Crohn^s disease
     Dosage: X INFLECTRA DIRECTIONS: 1100 MG INFUSED IV EVERY MONTH QUANTITY: 11 REFILLS: 11
     Route: 042
  2. AMITRIPTYLINE HYDROCHLORIDE [Concomitant]
     Active Substance: AMITRIPTYLINE HYDROCHLORIDE
     Dosage: UNK
  3. AMITRIPTYLINE HYDROCHLORIDE [Concomitant]
     Active Substance: AMITRIPTYLINE HYDROCHLORIDE
     Dosage: UNK
  4. LAMOTRIGINE [Concomitant]
     Active Substance: LAMOTRIGINE
  5. FLUTICASONE PROPIONATE [Concomitant]
     Active Substance: FLUTICASONE PROPIONATE
  6. CYPROHEPTADINE HYDROCHLORIDE [Concomitant]
     Active Substance: CYPROHEPTADINE HYDROCHLORIDE
  7. LEVOTHYROXINE SODIUM [Concomitant]
     Active Substance: LEVOTHYROXINE SODIUM
  8. GLUTAMINE [LEVOGLUTAMIDE] [Concomitant]
  9. ACETYLCYSTEINE [Concomitant]
     Active Substance: ACETYLCYSTEINE
  10. CETIRIZINE HCL [Concomitant]
     Active Substance: CETIRIZINE HYDROCHLORIDE
  11. CEVIMELINE HYDROCHLORIDE [Concomitant]
     Active Substance: CEVIMELINE HYDROCHLORIDE
  12. ZOFRAN [Concomitant]
     Active Substance: ONDANSETRON HYDROCHLORIDE
  13. DEXLANSOPRAZOLE [Concomitant]
     Active Substance: DEXLANSOPRAZOLE
  14. GABAPENTIN [Concomitant]
     Active Substance: GABAPENTIN
  15. ZOLPIDEM TARTRATE [Concomitant]
     Active Substance: ZOLPIDEM TARTRATE
  16. VERAPAMIL HCL [Concomitant]
     Active Substance: VERAPAMIL HYDROCHLORIDE
  17. VITAMIN D3 [Concomitant]
     Active Substance: CHOLECALCIFEROL
  18. CARDURA [Concomitant]
     Active Substance: DOXAZOSIN MESYLATE
  19. ACYCLOVIR [Concomitant]
     Active Substance: ACYCLOVIR
  20. ASPIRIN [Concomitant]
     Active Substance: ASPIRIN
  21. CARNITINE [Concomitant]
     Active Substance: CARNITINE
  22. CREATINE [Concomitant]
     Active Substance: CREATINE
  23. FOLIC ACID [Concomitant]
     Active Substance: FOLIC ACID
  24. SUPER B COMPLEX [VITAMIN B COMPLEX] [Concomitant]
  25. VITAMINS [Concomitant]
     Active Substance: VITAMINS
  26. CALCIUM 600+D [CALCIUM;COLECALCIFEROL] [Concomitant]
  27. NIMODIPINE [Concomitant]
     Active Substance: NIMODIPINE
  28. METHOTREXATE SODIUM [Concomitant]
     Active Substance: METHOTREXATE SODIUM
  29. CYMBALTA [Concomitant]
     Active Substance: DULOXETINE HYDROCHLORIDE
  30. LIOTHYRONINE SODIUM [Concomitant]
     Active Substance: LIOTHYRONINE SODIUM
  31. AMBIEN [Concomitant]
     Active Substance: ZOLPIDEM TARTRATE
  32. NORCO [Concomitant]
     Active Substance: ACETAMINOPHEN\HYDROCODONE BITARTRATE
  33. FUROSEMIDE [Concomitant]
     Active Substance: FUROSEMIDE
  34. EPIPEN [Concomitant]
     Active Substance: EPINEPHRINE
  35. COENZYME Q10 [Concomitant]
     Active Substance: DIETARY SUPPLEMENT\UBIDECARENONE

REACTIONS (1)
  - Off label use [Unknown]
